FAERS Safety Report 18236484 (Version 1)
Quarter: 2020Q3

REPORT INFORMATION
  Report Type: Spontaneous
  Country: FR (occurrence: FR)
  Receive Date: 20200907
  Receipt Date: 20200907
  Transmission Date: 20201103
  Serious: Yes (Other)
  Sender: FDA-Public Use
  Company Number: FR-US-PROVELL PHARMACEUTICALS LLC-E2B_90079838

PATIENT
  Sex: Female

DRUGS (2)
  1. LEVOTHYROX [Suspect]
     Active Substance: LEVOTHYROXINE
     Dosage: RE?INTRODUCED
     Dates: start: 202005
  2. LEVOTHYROX [Suspect]
     Active Substance: LEVOTHYROXINE
     Indication: THYROID DISORDER

REACTIONS (9)
  - Suicidal ideation [Recovering/Resolving]
  - Adverse event [Not Recovered/Not Resolved]
  - Gait disturbance [Recovering/Resolving]
  - Depression [Recovering/Resolving]
  - Weight increased [Recovering/Resolving]
  - Dizziness [Recovering/Resolving]
  - Pain [Recovering/Resolving]
  - Malaise [Recovering/Resolving]
  - Burning sensation [Recovering/Resolving]
